FAERS Safety Report 4511446-5 (Version None)
Quarter: 2004Q4

REPORT INFORMATION
  Report Type: 
  Country: None (occurrence: None)
  Receive Date: 20041129
  Receipt Date: 20040813
  Transmission Date: 20050328
  Serious: No
  Sender: FDA-Public Use
  Company Number: US-BRISTOL-MYERS SQUIBB COMPANY-12671327

PATIENT
  Age: 31 Year
  Sex: Female
  Weight: 53 kg

DRUGS (8)
  1. ABILIFY [Suspect]
     Indication: ABNORMAL BEHAVIOUR
     Dates: start: 20040105
  2. COGENTIN [Concomitant]
     Dates: start: 20031201
  3. LUVOX [Concomitant]
     Indication: DEPRESSION
     Dates: start: 20031201
  4. PLAQUENIL [Concomitant]
     Indication: SYSTEMIC LUPUS ERYTHEMATOSUS
     Dates: start: 20040201
  5. REMERON [Concomitant]
     Indication: INSOMNIA
  6. NEURONTIN [Concomitant]
     Indication: CONVULSION
     Dates: start: 20031201
  7. TEGRETOL [Concomitant]
     Indication: CONVULSION
     Dates: start: 20031201
  8. TOPAMAX [Concomitant]
     Indication: CONVULSION
     Dates: start: 20031201

REACTIONS (1)
  - HEAD BANGING [None]
